FAERS Safety Report 4673503-2 (Version None)
Quarter: 2005Q2

REPORT INFORMATION
  Report Type: 
  Country: None (occurrence: None)
  Receive Date: 20050523
  Receipt Date: 20050511
  Transmission Date: 20051028
  Serious: Yes (Life-Threatening, Hospitalization)
  Sender: FDA-Public Use
  Company Number: 200510239BVD

PATIENT
  Age: 40 Year
  Sex: Male
  Weight: 78 kg

DRUGS (4)
  1. AVELOX [Suspect]
     Indication: OTITIS MEDIA
     Dosage: 400 MG, QD, ORAL
     Route: 048
     Dates: start: 20050113, end: 20050117
  2. AVELOX [Suspect]
     Indication: SINUSITIS
     Dosage: 400 MG, QD, ORAL
     Route: 048
     Dates: start: 20050113, end: 20050117
  3. SALOFALK [Concomitant]
  4. URSO FALK [Concomitant]

REACTIONS (7)
  - AUTOIMMUNE THROMBOCYTOPENIA [None]
  - BLEEDING TIME PROLONGED [None]
  - COAGULATION FACTOR VIII LEVEL INCREASED [None]
  - GRANULOCYTES MATURATION ARREST [None]
  - HAEMATOMA [None]
  - THERAPY NON-RESPONDER [None]
  - VON WILLEBRAND'S FACTOR MULTIMERS ABNORMAL [None]
